FAERS Safety Report 8420635 (Version 2)
Quarter: 2012Q4

REPORT INFORMATION
  Report Type: 
  Country: US (occurrence: US)
  Receive Date: 20120222
  Receipt Date: 20121127
  Transmission Date: 20130627
  Serious: Yes (Hospitalization)
  Sender: FDA-Public Use
  Company Number: US-GLAXOSMITHKLINE-A0833054A

PATIENT
  Age: 48 Year
  Sex: Male
  Weight: 95 kg

DRUGS (1)
  1. AVANDIA [Suspect]
     Indication: DIABETES MELLITUS
     Route: 048
     Dates: start: 2000, end: 200603

REACTIONS (4)
  - Myocardial infarction [Not Recovered/Not Resolved]
  - Transient ischaemic attack [Unknown]
  - Cardiovascular disorder [Unknown]
  - Coronary artery disease [Unknown]
